FAERS Safety Report 14216580 (Version 1)
Quarter: 2017Q4

REPORT INFORMATION
  Report Type: Report from Study
  Country: JP (occurrence: JP)
  Receive Date: 20171122
  Receipt Date: 20171122
  Transmission Date: 20180321
  Serious: Yes (Hospitalization, Other)
  Sender: FDA-Public Use
  Company Number: JP-DSJP-DSJ-2016-136658

PATIENT

DRUGS (26)
  1. BAYASPIRIN [Concomitant]
     Active Substance: ASPIRIN
     Dosage: 100MG/DAY
     Route: 048
     Dates: end: 20160225
  2. AMLODIPINE                         /00972402/ [Concomitant]
     Active Substance: AMLODIPINE BESYLATE
     Dosage: 2.5MG/DAY
     Route: 048
     Dates: start: 20151112, end: 20160710
  3. LOXOPROFEN SODIUM [Concomitant]
     Active Substance: LOXOPROFEN SODIUM
     Dosage: 60MG/DAY
     Route: 048
     Dates: start: 20160425
  4. EDOXABAN [Suspect]
     Active Substance: EDOXABAN TOSYLATE
     Indication: ATRIAL FIBRILLATION
     Dosage: 30 MG, QD
     Route: 048
     Dates: start: 20151027, end: 20160226
  5. OPALMON [Concomitant]
     Active Substance: LIMAPROST
     Dosage: 15UG/DAY
     Route: 048
     Dates: end: 20160317
  6. ACTONEL [Concomitant]
     Active Substance: RISEDRONATE SODIUM
     Dosage: 17.5 MG, ONCE EVERY 1 WK
     Route: 048
  7. LIMAPROST ALFADEX [Concomitant]
     Active Substance: LIMAPROST
     Dosage: 15UG/DAY
     Route: 048
     Dates: start: 20160520
  8. EDOXABAN [Suspect]
     Active Substance: EDOXABAN TOSYLATE
     Dosage: 30 MG, QD
     Route: 048
     Dates: start: 20160407
  9. PRAVASTATIN NA [Concomitant]
     Active Substance: PRAVASTATIN SODIUM
     Dosage: 10MG/DAY
     Route: 048
     Dates: end: 20160524
  10. SUNRYTHM [Concomitant]
     Active Substance: PILSICAINIDE HYDROCHLORIDE
     Indication: ATRIAL FIBRILLATION
     Dosage: 50MG/DAY
     Route: 048
     Dates: start: 20151026
  11. LANSOPRAZOLE. [Concomitant]
     Active Substance: LANSOPRAZOLE
     Dosage: 30MG/DAY
     Route: 048
     Dates: start: 20160531
  12. FERROUS SODIUM CITRATE [Concomitant]
     Active Substance: SODIUM FERROUS CITRATE
     Dosage: 50MG/DAY
     Route: 048
     Dates: start: 20160822
  13. ISOSORBIDE DINITRATE. [Concomitant]
     Active Substance: ISOSORBIDE DINITRATE
     Dosage: 1DF/DAY
     Route: 050
  14. TAKEPRON [Concomitant]
     Active Substance: LANSOPRAZOLE
     Dosage: 30MG/DAY
     Route: 048
     Dates: end: 20160530
  15. FESIN                              /00023550/ [Concomitant]
     Active Substance: IRON SUCROSE
     Dosage: 80 MG, AS NEEDED
     Route: 042
     Dates: start: 20160425, end: 20160711
  16. SEISHOKU [Concomitant]
     Active Substance: SODIUM CHLORIDE
     Dosage: 100 ML, AS NEEDED
     Route: 042
     Dates: start: 20160425, end: 20160711
  17. BAYASPIRIN [Concomitant]
     Active Substance: ASPIRIN
     Dosage: 100MG/DAY
     Route: 048
     Dates: start: 20160425
  18. MAINTATE [Concomitant]
     Active Substance: BISOPROLOL FUMARATE
     Dosage: 1.25MG/DAY
     Route: 048
     Dates: end: 20171106
  19. EDOXABAN [Suspect]
     Active Substance: EDOXABAN TOSYLATE
     Dosage: 30 MG, QD
     Route: 048
     Dates: start: 20160301, end: 20160403
  20. OPALMON [Concomitant]
     Active Substance: LIMAPROST
     Dosage: 15UG/DAY
     Route: 048
     Dates: end: 20160317
  21. ULTIBRO [Concomitant]
     Active Substance: GLYCOPYRRONIUM\INDACATEROL
     Dosage: 1 INHALATION/DAY
     Route: 055
  22. MOBIC [Concomitant]
     Active Substance: MELOXICAM
     Dosage: 10MG/DAY
     Route: 048
     Dates: start: 20151026, end: 20160711
  23. BAYASPIRIN [Concomitant]
     Active Substance: ASPIRIN
     Dosage: 100MG/DAY
     Route: 048
     Dates: start: 20160301, end: 20160317
  24. THYRADIN S [Concomitant]
     Active Substance: LEVOTHYROXINE SODIUM
     Dosage: 50UG/DAY
     Route: 048
  25. FERROMIA [Concomitant]
     Active Substance: SODIUM FERROUS CITRATE
     Dosage: 100MG/DAY
     Route: 048
     Dates: start: 20160302, end: 20160331
  26. NITROPEN [Concomitant]
     Active Substance: NITROGLYCERIN
     Dosage: 0.3 MG, DURING AN ATTACK
     Route: 048
     Dates: start: 20160404, end: 20161003

REACTIONS (3)
  - Lung neoplasm malignant [Not Recovered/Not Resolved]
  - Anaemia [Not Recovered/Not Resolved]
  - Haemothorax [Unknown]

NARRATIVE: CASE EVENT DATE: 20160208
